FAERS Safety Report 20493422 (Version 2)
Quarter: 2022Q1

REPORT INFORMATION
  Report Type: Spontaneous
  Country: AU (occurrence: AU)
  Receive Date: 20220220
  Receipt Date: 20220221
  Transmission Date: 20220424
  Serious: Yes (Death)
  Sender: FDA-Public Use
  Company Number: AU-ABBVIE-22K-008-4284278-00

PATIENT
  Age: 80 Year
  Sex: Female

DRUGS (2)
  1. VENETOCLAX [Suspect]
     Active Substance: VENETOCLAX
     Indication: Acute myeloid leukaemia refractory
     Route: 048
  2. VENETOCLAX [Suspect]
     Active Substance: VENETOCLAX
     Indication: Acute myeloid leukaemia recurrent
     Dosage: 50 PERCENT DOSE
     Route: 048

REACTIONS (3)
  - Cytopenia [Fatal]
  - Mental disorder [Unknown]
  - Diarrhoea [Recovered/Resolved]
